FAERS Safety Report 9705903 (Version 1)
Quarter: 2013Q4

REPORT INFORMATION
  Report Type: Spontaneous
  Country: US (occurrence: US)
  Receive Date: 20131122
  Receipt Date: 20131122
  Transmission Date: 20140711
  Serious: No
  Sender: FDA-Public Use
  Company Number: US-GALDERMA-US13000501

PATIENT
  Age: 80 Year
  Sex: Female
  Weight: 66 kg

DRUGS (7)
  1. CLOBEX (CLOBETASOL PROPIONATE) SPRAY, 0.05% [Suspect]
     Indication: PSORIASIS
     Route: 061
     Dates: start: 20130205, end: 20130211
  2. CLOBETASOL TOPICAL SOLUTION, 0.05% [Concomitant]
     Indication: PSORIASIS
     Route: 061
  3. ASPIRIN [Concomitant]
     Dosage: 1
     Route: 048
  4. METOPROLOL [Concomitant]
     Indication: BLOOD PRESSURE
     Route: 048
  5. PRAVASTATIN [Concomitant]
     Indication: BLOOD CHOLESTEROL INCREASED
     Route: 048
  6. GEMFIBROZIL [Concomitant]
     Indication: BLOOD CHOLESTEROL INCREASED
     Route: 048
  7. MULTIVITAMIN [Concomitant]
     Route: 048

REACTIONS (2)
  - Diarrhoea [Recovered/Resolved]
  - Drug administration error [Recovered/Resolved]
